FAERS Safety Report 4603818-5 (Version None)
Quarter: 2005Q1

REPORT INFORMATION
  Report Type: 
  Country: None (occurrence: None)
  Receive Date: 20050310
  Receipt Date: 20050119
  Transmission Date: 20050727
  Serious: Yes (Other)
  Sender: FDA-Public Use
  Company Number: AU-MERCK-0502AUS00140

PATIENT
  Age: 67 Year
  Sex: Female

DRUGS (3)
  1. FLUTICASONE PROPIONATE AND SALMETEROL XINAFOATE [Concomitant]
     Indication: ASTHMA
     Route: 065
  2. FOSINOPRIL SODIUM [Concomitant]
     Route: 065
  3. VIOXX [Suspect]
     Route: 048
     Dates: start: 20030101, end: 20041001

REACTIONS (2)
  - CEREBROVASCULAR ACCIDENT [None]
  - GENERAL SYMPTOM [None]
